FAERS Safety Report 23930612 (Version 2)
Quarter: 2024Q2

REPORT INFORMATION
  Report Type: Spontaneous
  Country: JP (occurrence: JP)
  Receive Date: 20240603
  Receipt Date: 20240624
  Transmission Date: 20240715
  Serious: Yes (Other)
  Sender: FDA-Public Use
  Company Number: JP-SA-2024SA159540

PATIENT
  Age: 64 Year
  Sex: Male

DRUGS (3)
  1. TAXOTERE [Suspect]
     Active Substance: DOCETAXEL
     Indication: Hormone-dependent prostate cancer
     Dosage: UNK
     Route: 041
  2. JEVTANA [Suspect]
     Active Substance: CABAZITAXEL
     Indication: Hormone-dependent prostate cancer
     Dosage: UNK
     Route: 041
  3. OLAPARIB [Concomitant]
     Active Substance: OLAPARIB
     Indication: Hormone-dependent prostate cancer
     Route: 065

REACTIONS (1)
  - Acute myeloid leukaemia [Unknown]
